FAERS Safety Report 16662323 (Version 2)
Quarter: 2020Q1

REPORT INFORMATION
  Report Type: Report from Study
  Country: CA (occurrence: CA)
  Receive Date: 20190802
  Receipt Date: 20200129
  Transmission Date: 20200409
  Serious: No
  Sender: FDA-Public Use
  Company Number: CA-EXELIXIS-CABO-19018276

PATIENT
  Sex: Male

DRUGS (1)
  1. CABOMETYX [Suspect]
     Active Substance: CABOZANTINIB S-MALATE
     Indication: RENAL CELL CARCINOMA
     Dosage: 60 MG, QD
     Route: 048
     Dates: start: 20181010, end: 201811

REACTIONS (5)
  - Peripheral swelling [Unknown]
  - Malignant neoplasm progression [Unknown]
  - Neck mass [Recovered/Resolved]
  - Back pain [Unknown]
  - Myalgia [Unknown]
